FAERS Safety Report 16550739 (Version 1)
Quarter: 2019Q3

REPORT INFORMATION
  Report Type: Spontaneous
  Country: IL (occurrence: IL)
  Receive Date: 20190710
  Receipt Date: 20190710
  Transmission Date: 20191004
  Serious: Yes (Other)
  Sender: FDA-Public Use
  Company Number: IL-TEVA-2019-IL-1075955

PATIENT

DRUGS (1)
  1. TAMOXIFEN [Suspect]
     Active Substance: TAMOXIFEN

REACTIONS (6)
  - Metastases to peritoneum [Unknown]
  - Metastases to bone [Unknown]
  - Pleural effusion [Unknown]
  - Metastases to lymph nodes [Unknown]
  - Metastases to soft tissue [Unknown]
  - Metastases to lung [Unknown]
